FAERS Safety Report 4450478-2 (Version None)
Quarter: 2004Q3

REPORT INFORMATION
  Report Type: 
  Country: None (occurrence: None)
  Receive Date: 20040914
  Receipt Date: 20040907
  Transmission Date: 20050211
  Serious: No
  Sender: FDA-Public Use
  Company Number: HQWYE946709SEP04

PATIENT
  Sex: Male

DRUGS (1)
  1. PRIMATENE MIST [Suspect]
     Indication: ASTHMA
     Dosage: 3-4 PUFFS AS NEEDED, INHALATION

REACTIONS (2)
  - DRUG DEPENDENCE [None]
  - OVERDOSE [None]
